FAERS Safety Report 9130101 (Version 1)
Quarter: 2013Q1

REPORT INFORMATION
  Report Type: Spontaneous
  Country: US (occurrence: US)
  Receive Date: 20130228
  Receipt Date: 20130228
  Transmission Date: 20140127
  Serious: Yes (Hospitalization)
  Sender: FDA-Public Use
  Company Number: US-ELI_LILLY_AND_COMPANY-US201302008654

PATIENT
  Age: 64 Year
  Sex: Male

DRUGS (2)
  1. EFFIENT [Suspect]
     Indication: STENT PLACEMENT
     Dosage: 60 MG, SINGLE
  2. EFFIENT [Suspect]
     Dosage: 10 MG, QD

REACTIONS (3)
  - Myocardial infarction [Unknown]
  - Thrombosis in device [Unknown]
  - Drug dose omission [Unknown]
